FAERS Safety Report 6931314-9 (Version None)
Quarter: 2010Q3

REPORT INFORMATION
  Report Type: 
  Country: None (occurrence: None)
  Receive Date: 20100816
  Receipt Date: 20100804
  Transmission Date: 20110219
  Serious: Yes (Death)
  Sender: FDA-Public Use
  Company Number: MSTR-NO-1008S-0283

PATIENT
  Age: 73 Year
  Sex: Female

DRUGS (3)
  1. METASERON (STRONTIUM SR89 CHLORIDE) [Suspect]
     Indication: METASTATIC PAIN
     Dosage: SINGLE DOSE, I.V.; 74 MBQ, SINGLE DOSE, I.V.
     Route: 042
     Dates: start: 20080610, end: 20080610
  2. METASERON (STRONTIUM SR89 CHLORIDE) [Suspect]
     Indication: METASTATIC PAIN
     Dosage: SINGLE DOSE, I.V.; 74 MBQ, SINGLE DOSE, I.V.
     Route: 042
     Dates: start: 20081209, end: 20081209
  3. METASERON (STRONTIUM SR89 CHLORIDE) [Suspect]

REACTIONS (1)
  - DEATH [None]
